FAERS Safety Report 9204223 (Version 1)
Quarter: 2013Q1

REPORT INFORMATION
  Report Type: Spontaneous
  Country: US (occurrence: None)
  Receive Date: 20120709
  Receipt Date: 20120709
  Transmission Date: 20140127
  Serious: No
  Sender: FDA-Public Use
  Company Number: 2012HGS-003473

PATIENT
  Age: 47 Year
  Sex: Female
  Weight: 85.73 kg

DRUGS (12)
  1. BENLYSTA [Suspect]
     Indication: SYSTEMIC LUPUS ERYTHEMATOSUS
     Dosage: 1 IN 28 D
     Route: 041
     Dates: start: 20120403
  2. PREDNISONE (PREDNISONE) (PREDNISONE) [Concomitant]
  3. PLAQUENTIL (HYDROXYCHLORQUINE SULFATE)(HYDROXYCHLORQUINE SULFATE) [Concomitant]
  4. ISOSORBIDE (ISOSORBIDE) (ISOSORBIDE) [Concomitant]
  5. ACETAZOLAMIDE (ACETYLZOLAMIDE) (ACETYLZOLAMIDE) [Concomitant]
  6. METOPORLOL (METOPROLOL) (METOPROLOL) [Concomitant]
  7. FOLIC ACID (FOLIC ACID) (FOLIC ACID) [Concomitant]
  8. ASPIRIN (ACETYLSALICYLIC ACID) (ACETYLSALICYLIC ACID) [Concomitant]
  9. SPIRIVA (TIOTROPIUM BROMIDE) (TIOTROPIUM BROIMIDE) [Concomitant]
  10. VENTOLIN (SALBUTAMOL) (SALBUTAMOL) [Concomitant]
  11. BENADRYL (DIPHENHYDRAMINE HYDROCHLORIDE)(DIPHENHYDRAMINE HYDROCHLORIDE) [Concomitant]
  12. TYLENOL (PARACETAMOL) (PARACETAMOL) [Concomitant]

REACTIONS (1)
  - Nausea [None]
